FAERS Safety Report 4598175-7 (Version None)
Quarter: 2005Q1

REPORT INFORMATION
  Report Type: 
  Country: None (occurrence: None)
  Receive Date: 20050301
  Receipt Date: 20050301
  Transmission Date: 20050727
  Serious: Yes (Other)
  Sender: FDA-Public Use
  Company Number: None

PATIENT
  Age: 44 Year
  Sex: Male
  Weight: 79.3795 kg

DRUGS (1)
  1. DEXTRO AMPHETAMINE 10 MG TAB BARR LAB INC [Suspect]
     Indication: ATTENTION DEFICIT/HYPERACTIVITY DISORDER
     Dosage: 2 TO 3 TABS/ DAY ORAL
     Route: 048
     Dates: start: 20050201

REACTIONS (3)
  - PHARMACEUTICAL PRODUCT COMPLAINT [None]
  - PHARMACEUTICAL PRODUCT COUNTERFEIT [None]
  - THERAPEUTIC PRODUCT INEFFECTIVE [None]
